FAERS Safety Report 24182459 (Version 1)
Quarter: 2024Q3

REPORT INFORMATION
  Report Type: Spontaneous
  Country: SI (occurrence: SI)
  Receive Date: 20240807
  Receipt Date: 20240807
  Transmission Date: 20241017
  Serious: Yes (Other)
  Sender: SANDOZ
  Company Number: SI-SANDOZ-SDZ2023SI034042

PATIENT

DRUGS (2)
  1. SULFAMETHOXAZOLE\TRIMETHOPRIM [Suspect]
     Active Substance: SULFAMETHOXAZOLE\TRIMETHOPRIM
     Indication: Product used for unknown indication
     Dosage: 2 TBL 3X A WEEK
     Route: 065
  2. CONTROLOC [Concomitant]
     Active Substance: PANTOPRAZOLE SODIUM
     Indication: Product used for unknown indication
     Dosage: 40 MG
     Route: 065

REACTIONS (8)
  - Graft versus host disease [Unknown]
  - Diabetes mellitus [Unknown]
  - Melaena [Unknown]
  - Pneumonia [Unknown]
  - Respiratory failure [Unknown]
  - Hepatic steatosis [Unknown]
  - Hypotension [Unknown]
  - Tachycardia [Unknown]
